FAERS Safety Report 5962911-5 (Version None)
Quarter: 2008Q4

REPORT INFORMATION
  Report Type: 
  Country: None (occurrence: None)
  Receive Date: 20081120
  Receipt Date: 20081120
  Transmission Date: 20090506
  Serious: Yes (Death)
  Sender: FDA-Public Use
  Company Number: None

PATIENT
  Age: 55 Year
  Sex: Female
  Weight: 79 kg

DRUGS (3)
  1. ETHREX MORPHINE SULFATE 30 MG. ER [Suspect]
     Indication: PAIN
     Dosage: 1 TABLET EVERY 12 HRS. ORAL
     Route: 048
     Dates: start: 20060101, end: 20070101
  2. ETHREX MORPHINE SULFATE 60 MG. ER [Suspect]
     Indication: PAIN
     Dosage: 1 TABLET EVERY 12 HRS. ORAL
     Route: 048
     Dates: start: 20060101, end: 20070101
  3. CYCLOBENZAPRINE HCL [Concomitant]

REACTIONS (2)
  - PRODUCT QUALITY ISSUE [None]
  - THERAPEUTIC AGENT TOXICITY [None]
